FAERS Safety Report 5274764-1 (Version None)
Quarter: 2007Q1

REPORT INFORMATION
  Report Type: 
  Country: None (occurrence: None)
  Receive Date: 20070321
  Receipt Date: 20061110
  Transmission Date: 20070707
  Serious: Yes (Hospitalization)
  Sender: FDA-Public Use
  Company Number: 231662K06USA

PATIENT
  Age: 35 Year
  Sex: Female

DRUGS (6)
  1. REBIF [Suspect]
     Indication: MULTIPLE SCLEROSIS
     Dates: start: 20040227, end: 20060101
  2. COZAAR [Concomitant]
  3. ZANTAC [Concomitant]
  4. BACLOFEN [Concomitant]
  5. VICODIN [Concomitant]
  6. NITRATES (ALL OTHER THERAPEUTIC PRODUCTS) [Concomitant]

REACTIONS (2)
  - THYROIDECTOMY [None]
  - TREMOR [None]
